FAERS Safety Report 8066510-3 (Version None)
Quarter: 2012Q1

REPORT INFORMATION
  Report Type: 
  Country: None (occurrence: None)
  Receive Date: 20120124
  Receipt Date: 20120113
  Transmission Date: 20120608
  Serious: Yes (Hospitalization, Other)
  Sender: FDA-Public Use
  Company Number: PHHY2011JP109438

PATIENT
  Age: 33 Year
  Sex: Female

DRUGS (6)
  1. AMLODIPINE [Concomitant]
  2. METHIAZIDE [Concomitant]
  3. BETAXOLOL HYDROCHLORIDE [Concomitant]
  4. FUROSEMIDE [Concomitant]
  5. OLMESARTAN MEDOXOMIL [Concomitant]
  6. ALISKIREN [Suspect]
     Indication: HYPERTENSION
     Route: 048

REACTIONS (4)
  - RENAL FAILURE ACUTE [None]
  - DRUG ERUPTION [None]
  - NEPHROPATHY [None]
  - MALAISE [None]
